FAERS Safety Report 17257017 (Version 1)
Quarter: 2020Q1

REPORT INFORMATION
  Report Type: Spontaneous
  Country: JP (occurrence: JP)
  Receive Date: 20200110
  Receipt Date: 20200110
  Transmission Date: 20200409
  Serious: Yes (Hospitalization)
  Sender: FDA-Public Use
  Company Number: JP-TEVA-2020-JP-1166658

PATIENT
  Age: 23 Year
  Sex: Female
  Weight: 32 kg

DRUGS (5)
  1. TACROLIMUS. [Interacting]
     Active Substance: TACROLIMUS
     Indication: IMMUNOSUPPRESSANT DRUG THERAPY
     Route: 065
  2. FOSFLUCONAZOLE [Interacting]
     Active Substance: FOSFLUCONAZOLE
     Indication: PNEUMONIA CRYPTOCOCCAL
     Dosage: 200 MILLIGRAM DAILY;
     Route: 065
  3. AMPHOTERICIN B-LIPOSOME [Suspect]
     Active Substance: AMPHOTERICIN B
     Indication: PNEUMONIA CRYPTOCOCCAL
     Dosage: 150 MILLIGRAM DAILY;
     Route: 065
  4. MYCOPHENOLATE MOFETIL. [Suspect]
     Active Substance: MYCOPHENOLATE MOFETIL
     Indication: IMMUNOSUPPRESSANT DRUG THERAPY
     Route: 065
  5. METHYLPREDNISOLONE. [Suspect]
     Active Substance: METHYLPREDNISOLONE
     Indication: IMMUNOSUPPRESSANT DRUG THERAPY
     Route: 065

REACTIONS (7)
  - Hypokalaemia [Not Recovered/Not Resolved]
  - Drug level increased [Unknown]
  - Hyponatraemia [Not Recovered/Not Resolved]
  - Pneumonia cryptococcal [Recovering/Resolving]
  - Drug interaction [Unknown]
  - Pathogen resistance [Unknown]
  - Renal injury [Recovering/Resolving]
